FAERS Safety Report 8821847 (Version 2)
Quarter: 2013Q2

REPORT INFORMATION
  Report Type: Spontaneous
  Country: CH (occurrence: CH)
  Receive Date: 20121002
  Receipt Date: 20130513
  Transmission Date: 20140414
  Serious: Yes (Hospitalization)
  Sender: FDA-Public Use
  Company Number: CH-AMGEN-CHESP2012061364

PATIENT
  Age: 76 Year
  Sex: Female

DRUGS (6)
  1. PROLIA [Suspect]
     Indication: OSTEOPOROSIS POSTMENOPAUSAL
     Dosage: 60 MG, ONE TIME DOSE
     Route: 058
     Dates: start: 20120831, end: 20120901
  2. LIVIAL [Suspect]
     Indication: MENOPAUSAL DISORDER
     Dosage: 2.5 MG, 3 TIMES/WK
     Route: 048
     Dates: start: 2002
  3. TERIPARATIDE [Concomitant]
  4. XARELTO [Concomitant]
     Dosage: 20 MG, QD
  5. KEPPRA [Concomitant]
     Dosage: 500 MG, BID
  6. COVERSUM [Concomitant]
     Dosage: 2.5 MG, QD

REACTIONS (4)
  - Cerebral venous thrombosis [Unknown]
  - Epilepsy [Unknown]
  - Pulmonary mass [Unknown]
  - Hepatic cyst [Unknown]
